FAERS Safety Report 8588489-8 (Version None)
Quarter: 2012Q3

REPORT INFORMATION
  Report Type: 
  Country: None (occurrence: None)
  Receive Date: 20120813
  Receipt Date: 20120803
  Transmission Date: 20120928
  Serious: Yes (Hospitalization)
  Sender: FDA-Public Use
  Company Number: CA-JNJFOC-20120802970

PATIENT
  Sex: Female
  Weight: 47 kg

DRUGS (2)
  1. REMICADE [Suspect]
     Route: 042
     Dates: start: 20120626
  2. REMICADE [Suspect]
     Indication: CROHN'S DISEASE
     Route: 042
     Dates: start: 20120601

REACTIONS (6)
  - HEART RATE INCREASED [None]
  - MALAISE [None]
  - HYPOTENSION [None]
  - URTICARIA [None]
  - DEHYDRATION [None]
  - ARTHRALGIA [None]
